FAERS Safety Report 15836041 (Version 2)
Quarter: 2019Q4

REPORT INFORMATION
  Report Type: Spontaneous
  Country: PL (occurrence: PL)
  Receive Date: 20190117
  Receipt Date: 20191203
  Transmission Date: 20200122
  Serious: Yes (Other)
  Sender: FDA-Public Use
  Company Number: PL-BAUSCH-BL-2019-000550

PATIENT
  Age: 65 Year
  Sex: Female

DRUGS (9)
  1. MIANSERIN [Interacting]
     Active Substance: MIANSERIN
     Route: 065
  2. ALPRAZOLAM. [Suspect]
     Active Substance: ALPRAZOLAM
     Indication: PRODUCT USED FOR UNKNOWN INDICATION
     Route: 065
  3. CLONAZEPAM. [Suspect]
     Active Substance: CLONAZEPAM
     Indication: PRODUCT USED FOR UNKNOWN INDICATION
     Route: 065
  4. TRAMADOL/PARACETAMOL [Interacting]
     Active Substance: ACETAMINOPHEN\TRAMADOL
     Indication: GLOSSODYNIA
     Dosage: 75 MG PLUS 650 MG
     Route: 065
  5. GABAPENTIN. [Suspect]
     Active Substance: GABAPENTIN
     Indication: GLOSSODYNIA
     Dosage: 3XD
     Route: 065
  6. METFORMIN [Concomitant]
     Active Substance: METFORMIN HYDROCHLORIDE
     Indication: TYPE 2 DIABETES MELLITUS
  7. LORAZEPAM. [Suspect]
     Active Substance: LORAZEPAM
     Indication: PRODUCT USED FOR UNKNOWN INDICATION
     Route: 065
  8. MIANSERIN [Interacting]
     Active Substance: MIANSERIN
     Indication: SLEEP DISORDER
     Dosage: AT BEDTIME
     Route: 065
  9. VENLAFAXINE [Interacting]
     Active Substance: VENLAFAXINE HYDROCHLORIDE
     Indication: DEPRESSION
     Route: 065

REACTIONS (11)
  - Drug interaction [Unknown]
  - Blood glucose increased [Unknown]
  - Increased appetite [Unknown]
  - Sedation complication [Unknown]
  - Fatigue [Unknown]
  - Hyperhidrosis [Unknown]
  - Dizziness [Unknown]
  - Drug dependence [Unknown]
  - Glossodynia [Recovered/Resolved]
  - Loss of personal independence in daily activities [Unknown]
  - Therapeutic product effect incomplete [Unknown]
